FAERS Safety Report 7535619-2 (Version None)
Quarter: 2011Q2

REPORT INFORMATION
  Report Type: 
  Country: None (occurrence: None)
  Receive Date: 20110609
  Receipt Date: 20110531
  Transmission Date: 20111010
  Serious: No
  Sender: FDA-Public Use
  Company Number: US-BAYER-2011-046826

PATIENT
  Sex: Female
  Weight: 83.9 kg

DRUGS (1)
  1. MIRENA [Suspect]
     Indication: PRODUCT USED FOR UNKNOWN INDICATION
     Dosage: 20 ?G, CONT

REACTIONS (5)
  - NAUSEA [None]
  - VOMITING [None]
  - MENSTRUATION DELAYED [None]
  - PAROSMIA [None]
  - WEIGHT DECREASED [None]
